FAERS Safety Report 10932778 (Version 1)
Quarter: 2015Q1

REPORT INFORMATION
  Report Type: Spontaneous
  Country: US (occurrence: None)
  Receive Date: 20150319
  Receipt Date: 20150319
  Transmission Date: 20150721
  Serious: No
  Sender: FDA-Public Use
  Company Number: 2014CT000234

PATIENT
  Age: 59 Year
  Sex: Female
  Weight: 81.65 kg

DRUGS (1)
  1. KORLYM [Suspect]
     Active Substance: MIFEPRISTONE
     Indication: CUSHING^S SYNDROME
     Route: 048
     Dates: start: 20141219

REACTIONS (1)
  - Swelling face [None]

NARRATIVE: CASE EVENT DATE: 20141219
